FAERS Safety Report 8180468-8 (Version None)
Quarter: 2012Q1

REPORT INFORMATION
  Report Type: 
  Country: None (occurrence: None)
  Receive Date: 20120302
  Receipt Date: 20120223
  Transmission Date: 20120608
  Serious: Yes (Other)
  Sender: FDA-Public Use
  Company Number: US-ALLERGAN-1201428US

PATIENT
  Sex: Female

DRUGS (8)
  1. BOTULINUM TOXIN TYPE A [Suspect]
     Dosage: UNK
     Route: 030
     Dates: start: 20110201, end: 20110201
  2. BOTULINUM TOXIN TYPE A [Suspect]
     Dosage: UNK
     Route: 030
     Dates: start: 20110101, end: 20110101
  3. BOTULINUM TOXIN TYPE A [Suspect]
     Indication: TORTICOLLIS
     Dosage: UNK
     Route: 030
     Dates: start: 20110601, end: 20110601
  4. KEPPRA [Concomitant]
     Indication: CONVULSION
     Dosage: 500 MG, BID
     Route: 048
  5. RESTORIL [Concomitant]
     Indication: INSOMNIA
     Dosage: 1 DF, QHS
     Route: 048
  6. CYCLOBENZAPRINE [Concomitant]
     Indication: MUSCLE RELAXANT THERAPY
     Dosage: 1 DF, QD
     Route: 048
  7. BOTULINUM TOXIN TYPE A [Suspect]
     Indication: HEADACHE
     Dosage: UNK
     Route: 030
     Dates: start: 20110915, end: 20110915
  8. BOTULINUM TOXIN TYPE A [Suspect]

REACTIONS (15)
  - DYSARTHRIA [None]
  - SENSORY LOSS [None]
  - HEAD INJURY [None]
  - FALL [None]
  - LIMB INJURY [None]
  - SPEECH DISORDER [None]
  - DRUG INEFFECTIVE [None]
  - CONCUSSION [None]
  - HEADACHE [None]
  - MALAISE [None]
  - TOOTH LOSS [None]
  - CONVULSION [None]
  - SLOW SPEECH [None]
  - FACIAL PAIN [None]
  - DYSPNOEA [None]
